FAERS Safety Report 11633647 (Version 1)
Quarter: 2015Q4

REPORT INFORMATION
  Report Type: Spontaneous
  Country: JP (occurrence: JP)
  Receive Date: 20151015
  Receipt Date: 20151015
  Transmission Date: 20160304
  Serious: Yes (Hospitalization, Disabling, Other)
  Sender: FDA-Public Use
  Company Number: JP-ASTRAZENECA-2015SE99048

PATIENT
  Age: 28 Year
  Sex: Male

DRUGS (3)
  1. VEGETAMIN B [Suspect]
     Active Substance: CHLORPROMAZINE HYDROCHLORIDE\PHENOBARBITAL\PROMETHAZINE
     Indication: SCHIZOPHRENIA
     Dosage: 1 DF, UNKNOWN FREQ.
     Route: 048
  2. QUETIAPINE [Suspect]
     Active Substance: QUETIAPINE
     Indication: SCHIZOPHRENIA
     Route: 048
  3. OLANZAPINE. [Suspect]
     Active Substance: OLANZAPINE
     Indication: SCHIZOPHRENIA
     Route: 048

REACTIONS (3)
  - Acute kidney injury [Unknown]
  - Neuroleptic malignant syndrome [Unknown]
  - Rhabdomyolysis [Unknown]
